FAERS Safety Report 11455631 (Version 1)
Quarter: 2015Q3

REPORT INFORMATION
  Report Type: Spontaneous
  Country: US (occurrence: US)
  Receive Date: 20150903
  Receipt Date: 20150903
  Transmission Date: 20151125
  Serious: No
  Sender: FDA-Public Use
  Company Number: US-BEH-2014045385

PATIENT
  Age: 59 Year
  Sex: Male
  Weight: 81 kg

DRUGS (13)
  1. DIPHENHYDRAMINE. [Concomitant]
     Active Substance: DIPHENHYDRAMINE
  2. ALBUTEROL. [Concomitant]
     Active Substance: ALBUTEROL
  3. OXYGEN. [Concomitant]
     Active Substance: OXYGEN
  4. EPIPEN [Concomitant]
     Active Substance: EPINEPHRINE
  5. NIACIN. [Concomitant]
     Active Substance: NIACIN
  6. HYDROCODONE BITARTRATE AND ACETAMINOPHEN [Concomitant]
     Active Substance: ACETAMINOPHEN\HYDROCODONE BITARTRATE
  7. COMBIVENT [Concomitant]
     Active Substance: ALBUTEROL SULFATE\IPRATROPIUM BROMIDE
  8. VITAMIN D [Concomitant]
     Active Substance: CHOLECALCIFEROL
  9. LMX [Concomitant]
     Active Substance: LIDOCAINE
  10. PREDNISONE. [Concomitant]
     Active Substance: PREDNISONE
  11. NAPROXEN. [Concomitant]
     Active Substance: NAPROXEN
  12. ZEMAIRA [Suspect]
     Active Substance: .ALPHA.1-PROTEINASE INHIBITOR HUMAN
     Indication: ALPHA-1 ANTI-TRYPSIN DEFICIENCY
     Route: 042
     Dates: start: 20140911, end: 20141008
  13. SODIUM CHLORIDE. [Concomitant]
     Active Substance: SODIUM CHLORIDE

REACTIONS (2)
  - Pyrexia [Unknown]
  - Incoherent [Unknown]

NARRATIVE: CASE EVENT DATE: 20140921
